FAERS Safety Report 8780207 (Version 1)
Quarter: 2012Q4

REPORT INFORMATION
  Report Type: Spontaneous
  Country: US (occurrence: None)
  Receive Date: 20120904
  Receipt Date: 20120904
  Transmission Date: 20130627
  Serious: Yes (Other)
  Sender: FDA-Public Use
  Company Number: None

PATIENT
  Age: 42 Year
  Sex: Female
  Weight: 72.58 kg

DRUGS (1)
  1. REUMOGAN PLUS [Suspect]
     Route: 048
     Dates: start: 20120301, end: 20120901

REACTIONS (7)
  - Blood cholesterol increased [None]
  - Weight increased [None]
  - Vision blurred [None]
  - Disturbance in attention [None]
  - Urticaria [None]
  - Hypersensitivity [None]
  - Poor quality sleep [None]
